FAERS Safety Report 18114418 (Version 4)
Quarter: 2021Q3

REPORT INFORMATION
  Report Type: Spontaneous
  Country: FR (occurrence: FR)
  Receive Date: 20200805
  Receipt Date: 20210730
  Transmission Date: 20211014
  Serious: Yes (Hospitalization, Disabling, Congenital Anomaly, Other)
  Sender: FDA-Public Use
  Company Number: FR-PFIZER INC-2020289216

PATIENT
  Sex: Female
  Weight: 3.41 kg

DRUGS (5)
  1. VITAMIN K [Concomitant]
     Active Substance: PHYTONADIONE
     Dosage: UNK
     Route: 064
  2. NEURONTIN [Suspect]
     Active Substance: GABAPENTIN
     Indication: EPILEPSY
     Dosage: 400 MG, 3X/DAY
     Route: 064
     Dates: start: 20020227, end: 20021107
  3. DEPAKINE CHRONO [Suspect]
     Active Substance: VALPROATE SODIUM
     Indication: EPILEPSY
     Dosage: 500 MG, 2X/DAY
     Route: 064
     Dates: start: 20020227, end: 20021107
  4. SPECIAFOLDINE [Concomitant]
     Active Substance: FOLIC ACID
     Dosage: UNK
     Route: 064
     Dates: start: 20020603
  5. UVEDOSE [Concomitant]
     Active Substance: CHOLECALCIFEROL
     Dosage: UNK
     Route: 064

REACTIONS (55)
  - Dyslexia [Unknown]
  - Hypermobility syndrome [Unknown]
  - Muscle spasticity [Not Recovered/Not Resolved]
  - Speech disorder developmental [Unknown]
  - Dysmorphism [Unknown]
  - Gait disturbance [Unknown]
  - Respiratory distress [Recovered/Resolved]
  - Dysphagia [Unknown]
  - Obesity [Unknown]
  - Foetal anticonvulsant syndrome [Unknown]
  - Scoliosis [Unknown]
  - Obsessive-compulsive personality disorder [Unknown]
  - Deafness [Unknown]
  - Bronchiolitis [Recovered/Resolved]
  - Asthmatic crisis [Not Recovered/Not Resolved]
  - Constipation [Unknown]
  - Ear disorder [Unknown]
  - Sleep apnoea syndrome [Unknown]
  - Maternal exposure during pregnancy [Not Recovered/Not Resolved]
  - Anterograde amnesia [Unknown]
  - Urinary tract infection [Unknown]
  - Ear infection [Unknown]
  - Motor dysfunction [Not Recovered/Not Resolved]
  - Lordosis [Unknown]
  - Nasopharyngitis [Unknown]
  - Oropharyngeal discomfort [Unknown]
  - Anxiety [Unknown]
  - Prognathism [Unknown]
  - Antisocial behaviour [Unknown]
  - Attention deficit hyperactivity disorder [Unknown]
  - Wound dehiscence [Unknown]
  - Peroneal nerve palsy [Unknown]
  - Astigmatism [Unknown]
  - Executive dysfunction [Unknown]
  - Amenorrhoea [Unknown]
  - Nasal disorder [Unknown]
  - Foot deformity [Unknown]
  - Language disorder [Unknown]
  - Dysgraphia [Unknown]
  - Ligament laxity [Unknown]
  - Developmental delay [Unknown]
  - Educational problem [Unknown]
  - Fatigue [Unknown]
  - Pain in extremity [Unknown]
  - Learning disorder [Unknown]
  - Cognitive disorder [Unknown]
  - Memory impairment [Unknown]
  - Muscle hernia [Unknown]
  - Myopia [Unknown]
  - Visual impairment [Unknown]
  - Adenoidal hypertrophy [Unknown]
  - Diarrhoea [Unknown]
  - Weight increased [Unknown]
  - Gastrooesophageal reflux disease [Unknown]
  - Haemangioma [Recovered/Resolved]

NARRATIVE: CASE EVENT DATE: 20021107
